FAERS Safety Report 16959709 (Version 2)
Quarter: 2019Q4

REPORT INFORMATION
  Report Type: Spontaneous
  Country: US (occurrence: US)
  Receive Date: 20191025
  Receipt Date: 20191216
  Transmission Date: 20200122
  Serious: Yes (Other)
  Sender: FDA-Public Use
  Company Number: US-009507513-1910USA012412

PATIENT
  Age: 27 Year
  Sex: Female
  Weight: 76.65 kg

DRUGS (1)
  1. NEXPLANON [Suspect]
     Active Substance: ETONOGESTREL
     Dosage: 1 DOSAGE FORM(ROUTE REPORTED AS SUBDERMAL)
     Route: 059

REACTIONS (4)
  - Incorrect product administration duration [Unknown]
  - Device dislocation [Unknown]
  - Device deployment issue [Unknown]
  - Complication associated with device [Recovered/Resolved]

NARRATIVE: CASE EVENT DATE: 20191017
